FAERS Safety Report 16688126 (Version 2)
Quarter: 2019Q3

REPORT INFORMATION
  Report Type: Report from Study
  Country: CH (occurrence: CH)
  Receive Date: 20190809
  Receipt Date: 20190812
  Transmission Date: 20191004
  Serious: Yes (Other)
  Sender: FDA-Public Use
  Company Number: CH-PFIZER INC-2019339378

PATIENT

DRUGS (1)
  1. ALDACTONE [Suspect]
     Active Substance: SPIRONOLACTONE
     Indication: CHORIORETINOPATHY
     Dosage: 50 MG, DAILY
     Route: 048

REACTIONS (1)
  - Urinary retention [Recovered/Resolved]
